FAERS Safety Report 12287246 (Version 1)
Quarter: 2016Q2

REPORT INFORMATION
  Report Type: Spontaneous
  Country: US (occurrence: US)
  Receive Date: 20160420
  Receipt Date: 20160420
  Transmission Date: 20160815
  Serious: No
  Sender: FDA-Public Use
  Company Number: US-PIERREL PHARMA S.P.A.-2015PIR00019

PATIENT
  Age: 70 Year
  Sex: Female

DRUGS (1)
  1. ORABLOC [Suspect]
     Active Substance: ARTICAINE HYDROCHLORIDE\EPINEPHRINE BITARTRATE
     Indication: ENDODONTIC PROCEDURE
     Dosage: 1.6 ML, ONCE
     Route: 004
     Dates: start: 20150710, end: 20150710

REACTIONS (1)
  - Drug effect prolonged [Recovering/Resolving]

NARRATIVE: CASE EVENT DATE: 20150710
